FAERS Safety Report 24107028 (Version 2)
Quarter: 2024Q3

REPORT INFORMATION
  Report Type: Report from Study
  Country: IL (occurrence: IL)
  Receive Date: 20240717
  Receipt Date: 20240719
  Transmission Date: 20241016
  Serious: Yes (Hospitalization)
  Sender: ABBVIE
  Company Number: IL-ABBVIE-5839985

PATIENT
  Age: 88 Year
  Sex: Male

DRUGS (3)
  1. CARBIDOPA\LEVODOPA [Suspect]
     Active Substance: CARBIDOPA\LEVODOPA
     Indication: Parkinson^s disease
     Dosage: MORNING DOSE: 7.5ML, CONTINUOUS DOSE 3.4ML, EXTRA DOSE 2.4ML,
     Route: 050
     Dates: end: 202407
  2. CARBIDOPA\LEVODOPA [Suspect]
     Active Substance: CARBIDOPA\LEVODOPA
     Route: 050
     Dates: start: 202407
  3. CARBIDOPA\LEVODOPA [Suspect]
     Active Substance: CARBIDOPA\LEVODOPA
     Route: 050
     Dates: start: 20170610

REACTIONS (5)
  - Tremor [Unknown]
  - Incorrect route of product administration [Unknown]
  - Device dislocation [Unknown]
  - Asthenia [Unknown]
  - Device fastener issue [Unknown]

NARRATIVE: CASE EVENT DATE: 20240701
